FAERS Safety Report 25654229 (Version 1)
Quarter: 2025Q3

REPORT INFORMATION
  Report Type: Report from Study
  Country: US (occurrence: US)
  Receive Date: 20250807
  Receipt Date: 20250807
  Transmission Date: 20251021
  Serious: No
  Sender: ACADIA PHARMACEUTICALS
  Company Number: US-ACADIA PHARMACEUTICALS INC.-ACA-2025-PIM-008979

PATIENT
  Sex: Male

DRUGS (15)
  1. NUPLAZID [Suspect]
     Active Substance: PIMAVANSERIN TARTRATE
     Indication: Parkinson^s disease psychosis
     Dosage: 34 MILLIGRAM, QD
     Route: 048
     Dates: start: 20240911
  2. CYANOCOBALAMIN [Concomitant]
     Active Substance: CYANOCOBALAMIN
  3. DONEPEZIL [Concomitant]
     Active Substance: DONEPEZIL
  4. FARXIGA [Concomitant]
     Active Substance: DAPAGLIFLOZIN PROPANEDIOL
  5. FUROSEMIDE [Concomitant]
     Active Substance: FUROSEMIDE
  6. LATANOPROST [Concomitant]
     Active Substance: LATANOPROST
  7. MELATONIN [Concomitant]
     Active Substance: MELATONIN
  8. METHYLPHENIDATE [Concomitant]
     Active Substance: METHYLPHENIDATE
  9. METOPROLOL [Concomitant]
     Active Substance: METOPROLOL
  10. NITROGLYCERIN [Concomitant]
     Active Substance: NITROGLYCERIN
  11. REPATHA [Concomitant]
     Active Substance: EVOLOCUMAB
  12. TRAMADOL [Concomitant]
     Active Substance: TRAMADOL
  13. VALSARTAN [Concomitant]
     Active Substance: VALSARTAN
  14. MINERALS\VITAMINS [Concomitant]
     Active Substance: MINERALS\VITAMINS
  15. VITAMIN D3 [Concomitant]
     Active Substance: CHOLECALCIFEROL

REACTIONS (1)
  - Fall [Recovered/Resolved]
